FAERS Safety Report 13307710 (Version 2)
Quarter: 2017Q2

REPORT INFORMATION
  Report Type: Spontaneous
  Country: US (occurrence: US)
  Receive Date: 20170308
  Receipt Date: 20170427
  Transmission Date: 20170830
  Serious: Yes (Other)
  Sender: FDA-Public Use
  Company Number: US-BAUSCH-BL-2017-005731

PATIENT
  Age: 88 Year
  Sex: Female

DRUGS (1)
  1. XENAZINE [Suspect]
     Active Substance: TETRABENAZINE
     Indication: DYSKINESIA
     Route: 048
     Dates: start: 20170208

REACTIONS (3)
  - Dyskinesia [Unknown]
  - Off label use [Unknown]
  - Abasia [Unknown]

NARRATIVE: CASE EVENT DATE: 201702
